FAERS Safety Report 24638285 (Version 2)
Quarter: 2024Q4

REPORT INFORMATION
  Report Type: Spontaneous
  Country: BR (occurrence: BR)
  Receive Date: 20241119
  Receipt Date: 20241120
  Transmission Date: 20250114
  Serious: Yes (Other)
  Sender: BAXTER
  Company Number: BR-BAXTER-2024BAX026857

PATIENT
  Age: 45 Year
  Sex: Female
  Weight: 61 kg

DRUGS (5)
  1. IRON [Suspect]
     Active Substance: IRON
     Indication: Mineral supplementation
     Dosage: DOSAGE: 2 AMPOULES DILUTED IN 250 ML OF SALINE SOLUTION, IN AN HOUR AND A HALF
     Route: 042
     Dates: start: 20240724, end: 20240724
  2. IRON [Suspect]
     Active Substance: IRON
     Indication: Iron deficiency anaemia
  3. SODIUM CHLORIDE [Suspect]
     Active Substance: SODIUM CHLORIDE
     Indication: Medication dilution
     Dosage: DOSAGE: 2 AMPOULES DILUTED IN 250 ML OF SALINE SOLUTION, IN AN HOUR AND A HALF
     Route: 042
     Dates: start: 20240724, end: 20240724
  4. HYDROCHLOROTHIAZIDE [Concomitant]
     Active Substance: HYDROCHLOROTHIAZIDE
     Indication: Hypertension
     Dosage: MANUFACTURED BY BRAINFARMA, 1 TABLET IN THE MORNING, BOTH ORALLY
     Route: 048
     Dates: start: 20240131
  5. ENALAPRIL [Concomitant]
     Active Substance: ENALAPRIL
     Indication: Hypertension
     Dosage: 1 TABLET IN THE MORNING AND ONE AT NIGHT, MANUFACTURED BY TEUTO
     Route: 048
     Dates: start: 20240131

REACTIONS (4)
  - Syncope [Recovered/Resolved]
  - Abdominal pain upper [Recovered/Resolved]
  - Paraesthesia [Recovered/Resolved]
  - Nausea [Recovered/Resolved]

NARRATIVE: CASE EVENT DATE: 20240724
